FAERS Safety Report 8790740 (Version 1)
Quarter: 2012Q4

REPORT INFORMATION
  Report Type: Spontaneous
  Country: US (occurrence: None)
  Receive Date: 20120913
  Receipt Date: 20120913
  Transmission Date: 20130627
  Serious: Yes (Life-Threatening)
  Sender: FDA-Public Use
  Company Number: None

PATIENT
  Age: 39 Year
  Sex: Female
  Weight: 96.5 kg

DRUGS (7)
  1. SERTRALINE [Suspect]
     Indication: DEPRESSION
     Dosage: 29 pills stat PO
     Route: 048
     Dates: start: 20110615
  2. SERTRALINE [Suspect]
     Indication: SUICIDE ATTEMPT
     Dosage: 29 pills stat PO
     Route: 048
     Dates: start: 20110615
  3. RISPERIDONE [Suspect]
     Indication: DEPRESSION
     Dosage: 29 pills stat PO
     Route: 048
     Dates: start: 20110615
  4. RISPERIDONE [Suspect]
     Indication: SUICIDE ATTEMPT
     Dosage: 29 pills stat PO
     Route: 048
     Dates: start: 20110615
  5. VICODIN [Concomitant]
  6. FERROUS SULFATE [Concomitant]
  7. AMBIEN [Concomitant]

REACTIONS (4)
  - Lethargy [None]
  - Acute hepatic failure [None]
  - Sepsis [None]
  - Incorrect dose administered [None]
